FAERS Safety Report 24820797 (Version 1)
Quarter: 2025Q1

REPORT INFORMATION
  Report Type: Spontaneous
  Country: US (occurrence: US)
  Receive Date: 20250108
  Receipt Date: 20250108
  Transmission Date: 20250408
  Serious: No
  Sender: SANOFI AVENTIS
  Company Number: US-SA-2025SA003207

PATIENT
  Age: 3 Year
  Sex: Male
  Weight: 16.95 kg

DRUGS (1)
  1. DUPIXENT [Suspect]
     Active Substance: DUPILUMAB
     Dosage: 300 MG, Q4W
     Route: 058

REACTIONS (6)
  - Pyrexia [Unknown]
  - Decreased appetite [Unknown]
  - Gait inability [Unknown]
  - Lethargy [Unknown]
  - Injection site erythema [Unknown]
  - Injection site swelling [Unknown]
